FAERS Safety Report 21502936 (Version 1)
Quarter: 2022Q4

REPORT INFORMATION
  Report Type: Spontaneous
  Country: RO (occurrence: None)
  Receive Date: 20221025
  Receipt Date: 20221025
  Transmission Date: 20230113
  Serious: Yes (Other)
  Sender: FDA-Public Use
  Company Number: 2022A353461

PATIENT
  Age: 78 Year
  Sex: Female

DRUGS (1)
  1. IMFINZI [Suspect]
     Active Substance: DURVALUMAB
     Indication: Small cell lung cancer extensive stage
     Route: 042
     Dates: start: 20210820

REACTIONS (3)
  - Malignant neoplasm progression [Recovered/Resolved]
  - Pulmonary embolism [Unknown]
  - Off label use [Unknown]
